FAERS Safety Report 8422309-7 (Version None)
Quarter: 2012Q2

REPORT INFORMATION
  Report Type: 
  Country: None (occurrence: None)
  Receive Date: 20120608
  Receipt Date: 20120308
  Transmission Date: 20120825
  Serious: Yes (Other)
  Sender: FDA-Public Use
  Company Number: US-ROCHE-790162

PATIENT
  Sex: Male
  Weight: 77.18 kg

DRUGS (2)
  1. ACCUTANE [Suspect]
     Indication: ACNE
     Route: 065
     Dates: start: 20040801, end: 20041201
  2. ACCUTANE [Suspect]

REACTIONS (8)
  - ALOPECIA [None]
  - PROCTITIS ULCERATIVE [None]
  - COLITIS ULCERATIVE [None]
  - BACK PAIN [None]
  - EPISTAXIS [None]
  - DEPRESSION [None]
  - ANXIETY [None]
  - CHAPPED LIPS [None]
